FAERS Safety Report 20940150 (Version 1)
Quarter: 2022Q2

REPORT INFORMATION
  Report Type: Spontaneous
  Country: US (occurrence: None)
  Receive Date: 20220609
  Receipt Date: 20220609
  Transmission Date: 20220720
  Serious: Yes (Hospitalization)
  Sender: FDA-Public Use
  Company Number: None

PATIENT
  Age: 51 Year
  Sex: Female
  Weight: 44 kg

DRUGS (3)
  1. PAXLOVID [Suspect]
     Active Substance: NIRMATRELVIR\RITONAVIR
     Indication: COVID-19
     Dates: end: 20220609
  2. cholecalciferol 25mcg daily [Concomitant]
  3. CYANOCOBALAMIN [Concomitant]
     Active Substance: CYANOCOBALAMIN

REACTIONS (4)
  - Hyponatraemia [None]
  - Malaise [None]
  - Asthenia [None]
  - Paraesthesia [None]

NARRATIVE: CASE EVENT DATE: 20220609
